FAERS Safety Report 6185443-0 (Version None)
Quarter: 2009Q2

REPORT INFORMATION
  Report Type: 
  Country: None (occurrence: None)
  Receive Date: 20090511
  Receipt Date: 20090430
  Transmission Date: 20091009
  Serious: Yes (Other)
  Sender: FDA-Public Use
  Company Number: CH-ASTRAZENECA-2009PK01190

PATIENT
  Age: 41 Year
  Sex: Female
  Weight: 75 kg

DRUGS (5)
  1. ENTOCORT CIR [Suspect]
     Indication: CROHN'S DISEASE
     Route: 048
     Dates: start: 20090312, end: 20090314
  2. PREDNISONE [Concomitant]
     Indication: CROHN'S DISEASE
     Route: 048
     Dates: start: 20090311
  3. COVERSUM COMBI [Concomitant]
     Indication: ESSENTIAL HYPERTENSION
     Route: 048
     Dates: start: 20060101
  4. ATENOLOL [Concomitant]
     Indication: ESSENTIAL HYPERTENSION
     Route: 048
     Dates: start: 20060101
  5. SYMBICORT [Concomitant]
     Indication: CROHN'S DISEASE
     Route: 055
     Dates: start: 20060101

REACTIONS (2)
  - ASTHMA [None]
  - DYSPNOEA [None]
